FAERS Safety Report 5672359-9 (Version None)
Quarter: 2008Q2

REPORT INFORMATION
  Report Type: 
  Country: None (occurrence: None)
  Receive Date: 20080219
  Receipt Date: 20071029
  Transmission Date: 20081010
  Serious: No
  Sender: FDA-Public Use
  Company Number: TPA2007A02222

PATIENT
  Age: 66 Year
  Sex: Female

DRUGS (7)
  1. ROZEREM [Suspect]
     Indication: SLEEP DISORDER
     Dosage: PER ORAL
     Route: 048
  2. PLAVIX [Concomitant]
  3. TOPROL-XL [Concomitant]
  4. NORVASC [Concomitant]
  5. GLUCOTROL [Concomitant]
  6. COUMADIN [Concomitant]
  7. POTASSIUM CHLORIDE [Concomitant]

REACTIONS (1)
  - PALPITATIONS [None]
